FAERS Safety Report 10085216 (Version 2)
Quarter: 2014Q2

REPORT INFORMATION
  Report Type: Spontaneous
  Country: BG (occurrence: BG)
  Receive Date: 20140417
  Receipt Date: 20140417
  Transmission Date: 20141212
  Serious: Yes (Hospitalization, Other)
  Sender: FDA-Public Use
  Company Number: PHHY2014BG039694

PATIENT
  Age: 23 Year
  Sex: Female

DRUGS (1)
  1. ETHINYLESTRADIOL+GESTODENE [Suspect]
     Route: 048

REACTIONS (9)
  - Brain oedema [Unknown]
  - Haemorrhagic cerebral infarction [Unknown]
  - Ischaemic stroke [Unknown]
  - Headache [Unknown]
  - Vomiting [Unknown]
  - Speech disorder [Unknown]
  - Jugular vein thrombosis [Unknown]
  - Subarachnoid haemorrhage [Unknown]
  - General physical health deterioration [Unknown]
